FAERS Safety Report 6704070-7 (Version None)
Quarter: 2010Q2

REPORT INFORMATION
  Report Type: 
  Country: None (occurrence: None)
  Receive Date: 20100430
  Receipt Date: 20100225
  Transmission Date: 20101027
  Serious: No
  Sender: FDA-Public Use
  Company Number: US-BAYER-201015363NA

PATIENT
  Age: 83 Year
  Sex: Female

DRUGS (3)
  1. LEUKINE [Suspect]
     Indication: MALIGNANT MELANOMA
     Dosage: 2 WEEKS ON AND 2 WEEKS OFF FOR APPROX 18 MONTHS
  2. ACE INHIBITOR [Concomitant]
  3. CT SCAN CONTRAST DYE [Concomitant]

REACTIONS (2)
  - BLOOD CREATININE INCREASED [None]
  - GLOMERULAR FILTRATION RATE DECREASED [None]
